FAERS Safety Report 6410155-5 (Version None)
Quarter: 2009Q4

REPORT INFORMATION
  Report Type: 
  Country: None (occurrence: None)
  Receive Date: 20091022
  Receipt Date: 20091012
  Transmission Date: 20100525
  Serious: Yes (Other)
  Sender: FDA-Public Use
  Company Number: IT-ROCHE-662221

PATIENT
  Age: 66 Year
  Sex: Male

DRUGS (4)
  1. SAQUINAVIR [Suspect]
     Indication: HIV INFECTION
     Route: 065
  2. LAMIVUDINE [Suspect]
     Indication: HIV INFECTION
     Route: 065
  3. STAVUDINE [Suspect]
     Indication: HIV INFECTION
     Route: 065
  4. PROLEUKIN [Suspect]
     Indication: HIV INFECTION
     Dosage: DRUG REPORTED AS IL-2
     Route: 065

REACTIONS (1)
  - NEUROENDOCRINE CARCINOMA OF THE SKIN [None]
